FAERS Safety Report 7945374-X (Version None)
Quarter: 2011Q4

REPORT INFORMATION
  Report Type: 
  Country: None (occurrence: None)
  Receive Date: 20111129
  Receipt Date: 20110920
  Transmission Date: 20120403
  Serious: No
  Sender: FDA-Public Use
  Company Number: US-GLAXOSMITHKLINE-A0930854B

PATIENT
  Sex: Female

DRUGS (3)
  1. WELLBUTRIN [Suspect]
     Indication: DEPRESSIVE SYMPTOM
     Dosage: 150MG TWICE PER DAY
     Route: 063
     Dates: start: 20100903, end: 20100908
  2. BUPROPION HYDROCHLORIDE [Suspect]
     Indication: DEPRESSIVE SYMPTOM
     Dosage: 150MG PER DAY
     Route: 063
     Dates: start: 20100903, end: 20100908
  3. AMBIEN CR [Concomitant]
     Indication: INSOMNIA
     Route: 063
     Dates: start: 20100903, end: 20100908

REACTIONS (1)
  - EXPOSURE DURING BREAST FEEDING [None]
